FAERS Safety Report 4304944-0 (Version None)
Quarter: 2004Q1

REPORT INFORMATION
  Report Type: 
  Country: None (occurrence: None)
  Receive Date: 20040226
  Receipt Date: 20040119
  Transmission Date: 20041129
  Serious: No
  Sender: FDA-Public Use
  Company Number: US-GLAXOSMITHKLINE-A0493970A

PATIENT
  Age: 53 Year
  Sex: Female

DRUGS (2)
  1. WELLBUTRIN XL [Suspect]
     Indication: DEPRESSION
     Dosage: 300MG PER DAY
     Route: 048
     Dates: start: 20030101
  2. EVISTA [Suspect]
     Indication: OSTEOPOROSIS PROPHYLAXIS
     Dosage: 1TAB PER DAY
     Dates: start: 20030101, end: 20040101

REACTIONS (5)
  - AMNESIA [None]
  - ARTHRALGIA [None]
  - DRY MOUTH [None]
  - FEELING HOT [None]
  - VISUAL DISTURBANCE [None]
